FAERS Safety Report 6795740-3 (Version None)
Quarter: 2010Q2

REPORT INFORMATION
  Report Type: 
  Country: None (occurrence: None)
  Receive Date: 20100625
  Receipt Date: 20100614
  Transmission Date: 20101027
  Serious: Yes (Disabling, Other)
  Sender: FDA-Public Use
  Company Number: DK-PURDUE-GBR-2010-0006693

PATIENT
  Sex: Male
  Weight: 73 kg

DRUGS (2)
  1. OXYCONTIN 10 MG DEPOTTABLETTER [Suspect]
     Indication: BACK PAIN
     Dosage: 10 MG, TID
     Route: 048
     Dates: start: 20090202, end: 20091022
  2. GABAPENTIN ACTAVIS [Concomitant]
     Indication: MUSCLE SPASMS
     Dosage: 300 MG, BID
     Route: 048
     Dates: start: 20090318

REACTIONS (9)
  - AGGRESSION [None]
  - COORDINATION ABNORMAL [None]
  - DISTURBANCE IN ATTENTION [None]
  - IRRITABILITY [None]
  - MEMORY IMPAIRMENT [None]
  - MUSCLE SPASMS [None]
  - TINNITUS [None]
  - URTICARIA [None]
  - VISUAL IMPAIRMENT [None]
